FAERS Safety Report 8411839-X (Version None)
Quarter: 2012Q2

REPORT INFORMATION
  Report Type: 
  Country: None (occurrence: None)
  Receive Date: 20120531
  Receipt Date: 20120531
  Transmission Date: 20120825
  Serious: Yes (Life-Threatening, Hospitalization)
  Sender: FDA-Public Use
  Company Number: None

PATIENT
  Age: 62 Year
  Sex: Male
  Weight: 86.2 kg

DRUGS (1)
  1. DILTIAZEM [Suspect]
     Indication: HYPERTENSION
     Dosage: 1 TAB TID PO
     Route: 048
     Dates: start: 20120330, end: 20120401

REACTIONS (8)
  - BRADYCARDIA [None]
  - ATRIAL FIBRILLATION [None]
  - PULSELESS ELECTRICAL ACTIVITY [None]
  - CARDIAC ARREST [None]
  - CYANOSIS [None]
  - BLOOD PRESSURE SYSTOLIC DECREASED [None]
  - UNRESPONSIVE TO STIMULI [None]
  - BLOOD PRESSURE FLUCTUATION [None]
